FAERS Safety Report 24272931 (Version 2)
Quarter: 2024Q4

REPORT INFORMATION
  Report Type: Spontaneous
  Country: JP (occurrence: JP)
  Receive Date: 20240902
  Receipt Date: 20241014
  Transmission Date: 20250114
  Serious: No
  Sender: MERCK
  Company Number: JP-MSD-M2024-34260

PATIENT
  Age: 89 Year
  Sex: Female

DRUGS (4)
  1. LAGEVRIO [Suspect]
     Active Substance: MOLNUPIRAVIR
     Indication: COVID-19 treatment
     Dosage: 800 MILLIGRAM, BID
     Route: 048
     Dates: start: 20240828, end: 20240901
  2. WARFARIN POTASSIUM [Concomitant]
     Active Substance: WARFARIN POTASSIUM
     Indication: Embolism
     Dosage: UNK
     Route: 048
  3. ROSUVASTATIN CALCIUM [Concomitant]
     Active Substance: ROSUVASTATIN CALCIUM
     Indication: Dyslipidaemia
     Dosage: UNK
     Route: 048
  4. MEMANTINE HYDROCHLORIDE [Concomitant]
     Active Substance: MEMANTINE HYDROCHLORIDE
     Indication: Dementia
     Dosage: UNK
     Route: 048

REACTIONS (2)
  - Wrong technique in product usage process [Recovered/Resolved]
  - Product use complaint [Unknown]

NARRATIVE: CASE EVENT DATE: 20240829
